FAERS Safety Report 12671600 (Version 1)
Quarter: 2016Q3

REPORT INFORMATION
  Report Type: Spontaneous
  Country: GB (occurrence: GB)
  Receive Date: 20160822
  Receipt Date: 20160822
  Transmission Date: 20161109
  Serious: Yes (Other)
  Sender: FDA-Public Use
  Company Number: GB-TEVA-684534ACC

PATIENT
  Age: 70 Year
  Sex: Male

DRUGS (10)
  1. FLUVOXAMINE [Concomitant]
     Active Substance: FLUVOXAMINE
  2. ZOPICLONE [Concomitant]
     Active Substance: ZOPICLONE
  3. MELATONIN [Concomitant]
     Active Substance: MELATONIN
  4. RAMIPRIL. [Concomitant]
     Active Substance: RAMIPRIL
     Dosage: 5 MILLIGRAM DAILY;
  5. METHOTREXATE. [Concomitant]
     Active Substance: METHOTREXATE
     Route: 058
  6. PARACETAMOL [Concomitant]
     Active Substance: ACETAMINOPHEN
  7. MIRTAZAPINE. [Suspect]
     Active Substance: MIRTAZAPINE
     Indication: DEPRESSION
     Route: 048
  8. PREDNISOLONE. [Concomitant]
     Active Substance: PREDNISOLONE
     Dosage: 9 MILLIGRAM DAILY;
  9. FOLIC ACID. [Concomitant]
     Active Substance: FOLIC ACID
     Dosage: 5 MILLIGRAM DAILY;
  10. MORPHINE [Concomitant]
     Active Substance: MORPHINE
     Dosage: MORPHINE SUSTAINED-RELEASE TABLET (MST)

REACTIONS (4)
  - Polymyalgia rheumatica [Recovered/Resolved]
  - Blood creatine phosphokinase increased [Recovered/Resolved]
  - Malaise [Recovered/Resolved]
  - Myalgia [Recovered/Resolved]
